FAERS Safety Report 23435838 (Version 2)
Quarter: 2024Q2

REPORT INFORMATION
  Report Type: Spontaneous
  Country: DE (occurrence: DE)
  Receive Date: 20240124
  Receipt Date: 20240402
  Transmission Date: 20240716
  Serious: Yes (Other)
  Sender: FDA-Public Use
  Company Number: DE-BRISTOL-MYERS SQUIBB COMPANY-2023-089224

PATIENT
  Age: 59 Year
  Sex: Male
  Weight: 105 kg

DRUGS (27)
  1. DOCETAXEL [Suspect]
     Active Substance: DOCETAXEL\DOCETAXEL ANHYDROUS
     Indication: Gastric cancer
     Dosage: 107 MILLIGRAM, *BIWEEKLY
     Route: 042
     Dates: start: 20230324
  2. LEUCOVORIN [Suspect]
     Active Substance: LEUCOVORIN\LEUCOVORIN CALCIUM
     Indication: Prophylaxis
     Dosage: 200 MG/M2, ONCE A DAY (FREQUENCY: ONCE)
     Route: 042
     Dates: start: 20230324
  3. OXALIPLATIN [Suspect]
     Active Substance: OXALIPLATIN
     Indication: Gastric cancer
     Dosage: 182 MILLIGRAM, *BIWEEKLY
     Route: 042
     Dates: start: 20230324
  4. FLUOROURACIL [Suspect]
     Active Substance: FLUOROURACIL
     Indication: Gastric cancer
     Dosage: 5569 MILLIGRAM *BIWEEKLY
     Route: 042
     Dates: start: 20230324
  5. OPDIVO [Suspect]
     Active Substance: NIVOLUMAB
     Indication: Gastric cancer
     Dosage: 240 MILLIGRAM*BIWEEKLY
     Route: 042
     Dates: start: 20230323
  6. FRESUBIN YODRINK [Concomitant]
     Indication: Product used for unknown indication
     Dosage: 200 MILLILITER, TWO TIMES A DAY
     Route: 048
     Dates: start: 20230313
  7. BENZYDAMINE [Concomitant]
     Active Substance: BENZYDAMINE
     Indication: Prophylaxis
     Dosage: UNK
     Route: 048
     Dates: start: 20230323
  8. LEUCOVORIN [Concomitant]
     Active Substance: LEUCOVORIN\LEUCOVORIN CALCIUM
     Indication: Prophylaxis
     Dosage: 200 MILLIGRAM/SQ. METER, ONCE A DAY
     Route: 042
     Dates: start: 20230324
  9. Kalinor [Concomitant]
     Indication: Product used for unknown indication
     Dosage: 1.56 GRAM(EVERY THREE WEEKS)
     Route: 048
  10. Kalinor [Concomitant]
     Dosage: 600 MILLIGRAM(0.33 DAY)
     Route: 048
     Dates: start: 20230324
  11. LOPERAMIDE [Concomitant]
     Active Substance: LOPERAMIDE
     Indication: Product used for unknown indication
     Dosage: 4 GRAM
     Route: 048
     Dates: start: 20230313
  12. METAMIZOLE [Concomitant]
     Active Substance: METAMIZOLE
     Indication: Product used for unknown indication
     Dosage: 1 GRAM, FOUR TIMES/DAY
     Route: 048
  13. ESOMEPRAZOLE [Concomitant]
     Active Substance: ESOMEPRAZOLE
     Indication: Product used for unknown indication
     Dosage: 40 GRAM, ONCE A DAY
     Route: 048
  14. EPLERENONE [Concomitant]
     Active Substance: EPLERENONE
     Indication: Product used for unknown indication
     Dosage: 50 MILLIGRAM, ONCE A DAY
     Route: 048
  15. VALSARTAN [Concomitant]
     Active Substance: VALSARTAN
     Indication: Product used for unknown indication
     Dosage: 160 MILLIGRAM, ONCE A DAY
     Route: 048
  16. INDAPAMIDE [Concomitant]
     Active Substance: INDAPAMIDE
     Indication: Product used for unknown indication
     Dosage: 1.5 MILLIGRAM, ONCE A DAY
     Route: 048
  17. BISOPROLOL [Concomitant]
     Active Substance: BISOPROLOL\BISOPROLOL FUMARATE
     Indication: Product used for unknown indication
     Dosage: 5 MILLIGRAM, ONCE A DAY
     Route: 048
  18. MCP [Concomitant]
     Active Substance: METOCLOPRAMIDE HYDROCHLORIDE
     Indication: Product used for unknown indication
     Dosage: 10 MILLIGRAM
     Route: 048
     Dates: start: 20230313
  19. OLIMEL [Concomitant]
     Active Substance: AMINO ACIDS\DEXTROSE\SOYBEAN OIL
     Indication: Product used for unknown indication
     Dosage: 1500 MILLILITER, ONCE A DAY (4.4%)
     Route: 042
     Dates: start: 20230313
  20. ONDANSETRON [Concomitant]
     Active Substance: ONDANSETRON
     Indication: Product used for unknown indication
     Dosage: 4 MILLIGRAM
     Route: 048
     Dates: start: 20230313
  21. TORSEMIDE [Concomitant]
     Active Substance: TORSEMIDE
     Indication: Product used for unknown indication
     Dosage: 5 MILLIGRAM, ONCE A DAY
     Route: 048
     Dates: start: 20230324
  22. SUFENTANIL [Concomitant]
     Active Substance: SUFENTANIL
     Indication: Product used for unknown indication
     Dosage: 50 MILLIGRAM, FOUR TIMES/DAY
     Route: 008
     Dates: start: 20230608
  23. ROPIVACAINE HYDROCHLORIDE [Concomitant]
     Active Substance: ROPIVACAINE HYDROCHLORIDE
     Indication: Product used for unknown indication
     Dosage: 2 MILLIGRAM, FOUR TIMES/DAY
     Route: 008
     Dates: start: 20230608
  24. LERCANIDIPINE [Concomitant]
     Active Substance: LERCANIDIPINE
     Indication: Product used for unknown indication
     Dosage: 10 MILLIGRAM, ONCE A DAY
     Route: 048
  25. VITAMIN C [Concomitant]
     Active Substance: ASCORBIC ACID
     Indication: Prophylaxis
     Dosage: 500 MILLIGRAM, ONCE A DAY
     Route: 042
     Dates: start: 20230608
  26. Novamin [Concomitant]
     Indication: Product used for unknown indication
     Dosage: 1 GRAM (4 DAILY)
     Route: 042
     Dates: start: 20230608
  27. PANTOPRAZOLE [Concomitant]
     Active Substance: PANTOPRAZOLE
     Indication: Product used for unknown indication
     Dosage: 40 MILLIGRAM, ONCE A DAY
     Route: 042
     Dates: start: 20230608

REACTIONS (15)
  - Leukopenia [Unknown]
  - Anastomotic ulcer [Unknown]
  - Hypokalaemia [Recovered/Resolved]
  - Infusion related reaction [Recovered/Resolved]
  - Gastric ulcer [Recovered/Resolved]
  - Alopecia [Unknown]
  - Dyspnoea [Unknown]
  - Neutrophil count decreased [Unknown]
  - Anaemia [Recovered/Resolved]
  - Scar pain [Unknown]
  - Memory impairment [Unknown]
  - Diarrhoea [Unknown]
  - Nausea [Unknown]
  - Gastric ulcer helicobacter [Unknown]
  - Chest pain [Unknown]

NARRATIVE: CASE EVENT DATE: 20230418
